FAERS Safety Report 22126468 (Version 1)
Quarter: 2023Q1

REPORT INFORMATION
  Report Type: Spontaneous
  Country: US (occurrence: US)
  Receive Date: 20230322
  Receipt Date: 20230322
  Transmission Date: 20230417
  Serious: No
  Sender: FDA-Public Use
  Company Number: US-ALLERGAN-2305251US

PATIENT
  Sex: Female

DRUGS (1)
  1. LUMIGAN [Suspect]
     Active Substance: BIMATOPROST
     Indication: Intraocular pressure test
     Dosage: 1 GTT  AT NIGHT

REACTIONS (3)
  - Accidental exposure to product [Unknown]
  - Product dispensing issue [Unknown]
  - Product delivery mechanism issue [Unknown]
